FAERS Safety Report 5055644-3 (Version None)
Quarter: 2006Q3

REPORT INFORMATION
  Report Type: 
  Country: None (occurrence: None)
  Receive Date: 20060714
  Receipt Date: 20060627
  Transmission Date: 20061208
  Serious: Yes (Disabling, Other)
  Sender: FDA-Public Use
  Company Number: USA031253708

PATIENT
  Age: 53 Year
  Sex: Male
  Weight: 85 kg

DRUGS (5)
  1. HUMALOG [Suspect]
     Indication: DIABETES MELLITUS
     Dates: start: 20020101
  2. ILETIN I [Suspect]
     Indication: DIABETES MELLITUS
     Dates: start: 19620101, end: 20020101
  3. ILETIN(INSULIN, ANIMAL BEEF/PORK SEMILENTE) VIAL [Suspect]
     Indication: DIABETES MELLITUS
     Dates: start: 19620101, end: 20020101
  4. LANTUS [Concomitant]
  5. HUMALOG PEN [Concomitant]

REACTIONS (11)
  - BLINDNESS UNILATERAL [None]
  - BLOOD GLUCOSE INCREASED [None]
  - CATARACT [None]
  - DIABETIC RETINOPATHY [None]
  - EYE HAEMORRHAGE [None]
  - IMPAIRED DRIVING ABILITY [None]
  - INCORRECT DOSE ADMINISTERED [None]
  - MEDICAL DEVICE COMPLICATION [None]
  - PHARMACEUTICAL PRODUCT COMPLAINT [None]
  - VISUAL ACUITY REDUCED [None]
  - VISUAL DISTURBANCE [None]
